FAERS Safety Report 4860716-X (Version None)
Quarter: 2005Q4

REPORT INFORMATION
  Report Type: 
  Country: None (occurrence: None)
  Receive Date: 20051220
  Receipt Date: 20051007
  Transmission Date: 20060501
  Serious: Yes (Hospitalization, Other)
  Sender: FDA-Public Use
  Company Number: JP-BOEHRINGER INGELHEIM PHARMACEUTICALS, INC.-2005-BP-18309NB

PATIENT
  Sex: Female
  Weight: 54.25 kg

DRUGS (8)
  1. MICARDIS [Suspect]
     Indication: HYPERTENSION
     Route: 048
     Dates: start: 20050530, end: 20051007
  2. MEVOLOTIN (PRAVASTATIN SODIUM) [Concomitant]
     Indication: HYPERLIPIDAEMIA
     Route: 048
     Dates: start: 20030125, end: 20051007
  3. ASPIRIN [Concomitant]
     Indication: CEREBRAL INFARCTION
     Route: 048
     Dates: start: 20030125
  4. AMLODIPINE BESYLATE [Concomitant]
     Indication: HYPERTENSION
     Route: 048
     Dates: start: 20030125
  5. TENORMIN [Concomitant]
     Indication: HYPERTENSION
     Route: 048
     Dates: start: 20030908
  6. LASIX [Concomitant]
     Indication: DIABETIC NEPHROPATHY
     Route: 048
     Dates: start: 20050530, end: 20051007
  7. ALDACTONE [Concomitant]
     Indication: DIABETIC NEPHROPATHY
     Route: 048
     Dates: start: 20050530, end: 20051007
  8. NOVOLIN 30R (INSULIN HUMAN (GENETICAL RECOMBINATION) [Concomitant]
     Indication: DIABETES MELLITUS
     Route: 058
     Dates: start: 20030125

REACTIONS (2)
  - RENAL FAILURE [None]
  - RHABDOMYOLYSIS [None]
